FAERS Safety Report 18367271 (Version 1)
Quarter: 2020Q4

REPORT INFORMATION
  Report Type: Spontaneous
  Country: FR (occurrence: FR)
  Receive Date: 20201009
  Receipt Date: 20201009
  Transmission Date: 20210114
  Serious: Yes (Hospitalization)
  Sender: FDA-Public Use
  Company Number: FR-MYLANLABS-2020M1085000

PATIENT
  Age: 79 Year
  Sex: Male

DRUGS (16)
  1. LOVENOX [Concomitant]
     Active Substance: ENOXAPARIN SODIUM
     Dosage: NON RENSEIGNEE ANTI-XA / 0.4 ML
     Route: 058
  2. KARDEGIC [Concomitant]
     Active Substance: ASPIRIN DL-LYSINE
     Dosage: 1 DOSAGE FORM, QD
     Route: 048
  3. VELMETIA [Concomitant]
     Active Substance: METFORMIN\SITAGLIPTIN
     Dosage: 1 DOSAGE FORM, QD
     Route: 048
  4. EXFORGE [Concomitant]
     Active Substance: AMLODIPINE BESYLATE\VALSARTAN
     Dosage: 1 DOSAGE FORM, QD
     Route: 048
  5. PARACETAMOL [Concomitant]
     Active Substance: ACETAMINOPHEN
     Dosage: NON RENSEIGNEE
     Route: 048
  6. METFORMINE                         /00082701/ [Concomitant]
     Active Substance: METFORMIN HYDROCHLORIDE
     Dosage: 1000 MILLIGRAM, QD
     Route: 048
  7. PREDNISONE. [Concomitant]
     Active Substance: PREDNISONE
     Dosage: 5 MILLIGRAM, QD
     Route: 048
  8. OXYCODONE [Concomitant]
     Active Substance: OXYCODONE
     Dosage: 60 MILLIGRAM, QD
     Route: 048
  9. HUMALOG [Concomitant]
     Active Substance: INSULIN LISPRO
     Dosage: 150 MILLIGRAM, QD
     Route: 058
  10. DALACINE                           /00166002/ [Concomitant]
     Active Substance: CLINDAMYCIN HYDROCHLORIDE
     Dosage: NON RENSEIGNEE
     Route: 048
     Dates: start: 20200205, end: 20200220
  11. PREGABALINE [Concomitant]
     Active Substance: PREGABALIN
     Dosage: 300 MILLIGRAM, QD
     Route: 048
  12. ULTRA LEVURE [Concomitant]
     Active Substance: SACCHAROMYCES CEREVISIAE
     Dosage: NON RENSEIGNEE
     Route: 048
  13. OXYNORMORO [Concomitant]
     Active Substance: OXYCODONE HYDROCHLORIDE
     Dosage: 4 DOSAGE FORM, QD
     Route: 048
  14. TOUJEO [Concomitant]
     Active Substance: INSULIN GLARGINE
     Dosage: 12 INTERNATIONAL UNIT, QD (300 UNIT?S/ML)
     Route: 058
  15. PRAVASTATIN. [Suspect]
     Active Substance: PRAVASTATIN
     Indication: PROPHYLAXIS
     Dosage: 20 MILLIGRAM, QD
     Route: 048
     Dates: end: 20200211
  16. NEBIVOLOL. [Concomitant]
     Active Substance: NEBIVOLOL
     Dosage: 0.25 MILLIGRAM, QD
     Route: 048

REACTIONS (2)
  - Myoglobin blood increased [Recovered/Resolved]
  - Blood creatine phosphokinase increased [Recovered/Resolved]

NARRATIVE: CASE EVENT DATE: 20200211
